FAERS Safety Report 5264095-8 (Version None)
Quarter: 2007Q1

REPORT INFORMATION
  Report Type: 
  Country: None (occurrence: None)
  Receive Date: 20070313
  Receipt Date: 20070301
  Transmission Date: 20070707
  Serious: Yes (Death, Other)
  Sender: FDA-Public Use
  Company Number: CA-ELI_LILLY_AND_COMPANY-CA200703001414

PATIENT
  Sex: Male

DRUGS (5)
  1. ZYPREXA [Suspect]
     Dosage: 20 MG, DAILY (1/D)
  2. METHOTRIMEPRAZINE [Concomitant]
     Dosage: 300 MG, DAILY (1/D)
  3. LITHIUM CARBONATE [Concomitant]
     Dosage: 600 MG, DAILY (1/D)
  4. LORAZEPAM [Concomitant]
     Dosage: 2 MG, DAILY (1/D)
  5. CHLORAL HYDRATE [Concomitant]
     Dosage: 2 G, DAILY (1/D)

REACTIONS (2)
  - DEATH [None]
  - PYREXIA [None]
